FAERS Safety Report 24689258 (Version 1)
Quarter: 2024Q4

REPORT INFORMATION
  Report Type: Spontaneous
  Country: FR (occurrence: FR)
  Receive Date: 20241203
  Receipt Date: 20241203
  Transmission Date: 20250114
  Serious: Yes (Other)
  Sender: ALEXION PHARMACEUTICALS
  Company Number: FR-BAYER-2024A158239

PATIENT
  Age: 85 Year

DRUGS (10)
  1. CRESTOR [Interacting]
     Active Substance: ROSUVASTATIN CALCIUM
     Indication: Product used for unknown indication
     Dosage: UNK
     Route: 065
  2. CRESTOR [Interacting]
     Active Substance: ROSUVASTATIN CALCIUM
     Dosage: UNK
  3. CRESTOR [Interacting]
     Active Substance: ROSUVASTATIN CALCIUM
     Dosage: UNK
     Route: 065
  4. CRESTOR [Interacting]
     Active Substance: ROSUVASTATIN CALCIUM
     Dosage: UNK
  5. NUBEQA [Interacting]
     Active Substance: DAROLUTAMIDE
     Indication: Prostate cancer recurrent
     Dosage: 600 MILLIGRAM, 1/DAY
     Route: 065
  6. NUBEQA [Interacting]
     Active Substance: DAROLUTAMIDE
     Dosage: 600 MILLIGRAM, 1/DAY
  7. NUBEQA [Interacting]
     Active Substance: DAROLUTAMIDE
     Dosage: 600 MILLIGRAM, 1/DAY
     Route: 065
  8. NUBEQA [Interacting]
     Active Substance: DAROLUTAMIDE
     Dosage: 600 MILLIGRAM, 1/DAY
  9. Previscan [Concomitant]
     Dosage: UNK
  10. Previscan [Concomitant]
     Dosage: UNK
     Route: 065

REACTIONS (2)
  - Drug interaction [Unknown]
  - International normalised ratio increased [Recovered/Resolved]
